FAERS Safety Report 8481902-6 (Version None)
Quarter: 2012Q2

REPORT INFORMATION
  Report Type: 
  Country: None (occurrence: None)
  Receive Date: 20120402
  Receipt Date: 20111007
  Transmission Date: 20120825
  Serious: Yes (Life-Threatening, Hospitalization, Disabling, Other)
  Sender: FDA-Public Use
  Company Number: A-US2011-55136

PATIENT
  Age: 59 Year
  Sex: Female

DRUGS (2)
  1. TRACLEER [Suspect]
     Indication: PULMONARY ARTERIAL HYPERTENSION
     Dosage: 62.5 MG, BID, ORAL
     Route: 048
     Dates: start: 20030821
  2. VENTAVIS [Suspect]
     Indication: PULMONARY ARTERIAL HYPERTENSION
     Dosage: 5 UG, QID, RESPIRATORY
     Route: 055
     Dates: start: 20061220

REACTIONS (4)
  - PULMONARY ARTERIAL HYPERTENSION [None]
  - COR PULMONALE [None]
  - FLUID RETENTION [None]
  - WEIGHT INCREASED [None]
